FAERS Safety Report 19995545 (Version 1)
Quarter: 2021Q4

REPORT INFORMATION
  Report Type: Spontaneous
  Country: US (occurrence: US)
  Receive Date: 20211025
  Receipt Date: 20211025
  Transmission Date: 20220303
  Serious: No
  Sender: FDA-Public Use
  Company Number: None

PATIENT
  Age: 65 Year
  Sex: Male

DRUGS (1)
  1. AFINITOR [Suspect]
     Active Substance: EVEROLIMUS
     Route: 048
     Dates: start: 202108

REACTIONS (5)
  - Fall [None]
  - Contusion [None]
  - Eye contusion [None]
  - Memory impairment [None]
  - Dysstasia [None]

NARRATIVE: CASE EVENT DATE: 20211022
